FAERS Safety Report 9649553 (Version 2)
Quarter: 2013Q4

REPORT INFORMATION
  Report Type: Spontaneous
  Country: US (occurrence: US)
  Receive Date: 20131028
  Receipt Date: 20131122
  Transmission Date: 20140711
  Serious: Yes (Death, Hospitalization)
  Sender: FDA-Public Use
  Company Number: US-CELGENEUS-163-21880-13104686

PATIENT
  Age: 74 Year
  Sex: Male

DRUGS (12)
  1. REVLIMID [Suspect]
     Indication: PLASMA CELL MYELOMA
     Dosage: 25 MILLIGRAM
     Route: 048
     Dates: start: 20130412, end: 20131013
  2. DEXAMETHASONE [Suspect]
     Indication: PLASMA CELL MYELOMA
     Route: 048
     Dates: start: 20130823, end: 20130830
  3. DEXAMETHASONE [Suspect]
     Route: 048
     Dates: start: 20130906, end: 20130927
  4. DEXAMETHASONE [Suspect]
     Dosage: 4 MILLIGRAM
     Route: 048
     Dates: start: 20131004, end: 20131013
  5. DEXAMETHASONE [Suspect]
     Route: 048
     Dates: start: 20130507, end: 20130607
  6. DEXAMETHASONE [Suspect]
     Route: 048
     Dates: start: 20130702, end: 20130816
  7. VELCADE [Suspect]
     Indication: PLASMA CELL MYELOMA
     Route: 048
     Dates: start: 20130823, end: 20131004
  8. VELCADE [Suspect]
     Route: 048
     Dates: start: 20130702, end: 20130816
  9. FLUCONAZOLE [Concomitant]
     Indication: ANTIFUNGAL PROPHYLAXIS
     Dosage: 200 MILLIGRAM
     Route: 048
     Dates: end: 20131013
  10. METOPROLOL [Concomitant]
     Indication: HYPERTENSION
     Dosage: 100 MILLIGRAM
     Route: 048
     Dates: end: 20131013
  11. ATORVASTATIN [Concomitant]
     Indication: HYPERCHOLESTEROLAEMIA
     Dosage: 20 MILLIGRAM
     Route: 048
     Dates: end: 20131013
  12. ENOXAPARIN [Concomitant]
     Indication: ANTICOAGULANT THERAPY
     Dosage: 40MG/0.4ML
     Route: 058
     Dates: end: 20131013

REACTIONS (3)
  - Acute respiratory failure [Fatal]
  - Renal failure acute [Fatal]
  - Sepsis [Unknown]
